FAERS Safety Report 13845061 (Version 2)
Quarter: 2017Q4

REPORT INFORMATION
  Report Type: Spontaneous
  Country: US (occurrence: US)
  Receive Date: 20170808
  Receipt Date: 20171012
  Transmission Date: 20180320
  Serious: No
  Sender: FDA-Public Use
  Company Number: US-ELI_LILLY_AND_COMPANY-US201611003455

PATIENT
  Sex: Male

DRUGS (3)
  1. HUMATROPE [Suspect]
     Active Substance: SOMATROPIN
     Dosage: 1.2 MG, DAILY
     Route: 058
  2. HUMATROPE [Suspect]
     Active Substance: SOMATROPIN
     Dosage: 1.4 UNK, UNK
     Route: 058
     Dates: end: 20170911
  3. HUMATROPE [Suspect]
     Active Substance: SOMATROPIN
     Indication: GROWTH HORMONE DEFICIENCY
     Dosage: 1.2 MG, DAILY
     Route: 065
     Dates: start: 201611

REACTIONS (6)
  - Injection site bruising [Unknown]
  - Injection site discomfort [Unknown]
  - Injection site mass [Recovered/Resolved]
  - Injection site pain [Unknown]
  - Incorrect route of drug administration [Unknown]
  - Injection site pain [Recovered/Resolved]
